FAERS Safety Report 11529004 (Version 1)
Quarter: 2015Q3

REPORT INFORMATION
  Report Type: Report from Study
  Country: US (occurrence: US)
  Receive Date: 20150921
  Receipt Date: 20150921
  Transmission Date: 20151125
  Serious: Yes (Other)
  Sender: FDA-Public Use
  Company Number: US-AMGEN-USASP2015095108

PATIENT
  Age: 59 Year
  Sex: Female

DRUGS (1)
  1. ENBREL [Suspect]
     Active Substance: ETANERCEPT
     Indication: RHEUMATOID ARTHRITIS
     Dosage: 50 MG, QWK
     Route: 065
     Dates: start: 2015

REACTIONS (9)
  - Fibromyalgia [Unknown]
  - Haemorrhoids [Unknown]
  - Pain in extremity [Unknown]
  - Diabetes mellitus [Unknown]
  - Mitral valve disease [Unknown]
  - Gait disturbance [Unknown]
  - Cardiac failure congestive [Unknown]
  - Hypertension [Unknown]
  - Arthralgia [Unknown]

NARRATIVE: CASE EVENT DATE: 2015
